FAERS Safety Report 8474076-9 (Version None)
Quarter: 2012Q2

REPORT INFORMATION
  Report Type: 
  Country: None (occurrence: None)
  Receive Date: 20120628
  Receipt Date: 20110512
  Transmission Date: 20120825
  Serious: Yes (Death)
  Sender: FDA-Public Use
  Company Number: US-MYLANLABS-2011S1007448

PATIENT
  Age: 45 Year
  Sex: Male
  Weight: 126.55 kg

DRUGS (1)
  1. CLOZAPINE [Suspect]
     Route: 048
     Dates: end: 20110301

REACTIONS (1)
  - MYOCARDIAL INFARCTION [None]
